FAERS Safety Report 7070647-5 (Version None)
Quarter: 2010Q4

REPORT INFORMATION
  Report Type: 
  Country: None (occurrence: None)
  Receive Date: 20101029
  Receipt Date: 20101018
  Transmission Date: 20110411
  Serious: Yes (Death)
  Sender: FDA-Public Use
  Company Number: JP-PFIZER INC-2010133603

PATIENT
  Age: 23 Year
  Sex: Male
  Weight: 51 kg

DRUGS (8)
  1. SILDENAFIL CITRATE [Suspect]
     Indication: PULMONARY ARTERIAL HYPERTENSION
     Dosage: 20 MG, 2X/DAY
     Route: 048
     Dates: start: 20080828
  2. SILDENAFIL CITRATE [Suspect]
     Dosage: 20 MG, 3X/DAY
     Route: 048
     Dates: start: 20080902, end: 20100121
  3. TRACLEER [Concomitant]
     Indication: PULMONARY HYPERTENSION
     Dosage: UNK
     Route: 048
     Dates: start: 20080804
  4. FLOLAN [Concomitant]
     Dosage: UNK
     Route: 042
     Dates: start: 20081111
  5. LASIX [Concomitant]
     Dosage: UNK
     Route: 048
     Dates: start: 20080827
  6. ALDACTONE [Concomitant]
     Dosage: UNK
     Route: 048
     Dates: start: 20081222
  7. PERSANTIN [Concomitant]
     Route: 048
  8. OMEPRAL [Concomitant]
     Route: 048

REACTIONS (1)
  - DEATH [None]
